FAERS Safety Report 7426217-X (Version None)
Quarter: 2011Q2

REPORT INFORMATION
  Report Type: 
  Country: None (occurrence: None)
  Receive Date: 20110420
  Receipt Date: 20100303
  Transmission Date: 20111010
  Serious: Yes (Other)
  Sender: FDA-Public Use
  Company Number: A0849326A

PATIENT
  Sex: Female

DRUGS (1)
  1. AVANDAMET [Suspect]
     Indication: DIABETES MELLITUS
     Route: 048
     Dates: start: 20030722, end: 20060102

REACTIONS (1)
  - TRANSIENT ISCHAEMIC ATTACK [None]
